FAERS Safety Report 11976774 (Version 1)
Quarter: 2016Q1

REPORT INFORMATION
  Report Type: Spontaneous
  Country: US (occurrence: US)
  Receive Date: 20160129
  Receipt Date: 20160129
  Transmission Date: 20160526
  Serious: Yes (Death)
  Sender: FDA-Public Use
  Company Number: CHPA2016US000955

PATIENT
  Age: 57 Year
  Sex: Male

DRUGS (1)
  1. NODOZ [Suspect]
     Active Substance: CAFFEINE
     Indication: PRODUCT USED FOR UNKNOWN INDICATION
     Dosage: UNK
     Route: 065

REACTIONS (3)
  - Alcohol poisoning [Fatal]
  - Completed suicide [Fatal]
  - Toxicity to various agents [Fatal]
